FAERS Safety Report 9293206 (Version 2)
Quarter: 2013Q3

REPORT INFORMATION
  Report Type: Spontaneous
  Country: DK (occurrence: FR)
  Receive Date: 20130516
  Receipt Date: 20130919
  Transmission Date: 20140515
  Serious: Yes (Other)
  Sender: FDA-Public Use
  Company Number: FR-PFIZER INC-2013071513

PATIENT
  Sex: Male

DRUGS (2)
  1. CYTOTEC [Suspect]
     Indication: LABOUR INDUCTION
     Dosage: 50 UG, SINGLE
     Route: 064
     Dates: start: 201011
  2. SYNTOCINON [Suspect]
     Indication: LABOUR INDUCTION
     Dosage: UNK
     Route: 064

REACTIONS (6)
  - Foetal exposure during delivery [Not Recovered/Not Resolved]
  - Heart rate decreased [Recovered/Resolved]
  - Neonatal respiratory arrest [Recovered/Resolved]
  - Motor dysfunction [Not Recovered/Not Resolved]
  - Musculoskeletal stiffness [Not Recovered/Not Resolved]
  - Hypotonia [Not Recovered/Not Resolved]
